FAERS Safety Report 7681477-5 (Version None)
Quarter: 2011Q3

REPORT INFORMATION
  Report Type: 
  Country: None (occurrence: None)
  Receive Date: 20110812
  Receipt Date: 20110804
  Transmission Date: 20111222
  Serious: Yes (Other)
  Sender: FDA-Public Use
  Company Number: PHHY2011GB70310

PATIENT
  Age: 76 Year
  Sex: Female

DRUGS (3)
  1. ALBUTEROL SULFATE AUTOHALER [Suspect]
     Indication: ASTHMA
     Dosage: UNK
  2. AMLODIPINE [Suspect]
     Dosage: UNK
  3. SERETIDE EVOHALER [Suspect]
     Indication: ASTHMA
     Dosage: 1 DF, PRN

REACTIONS (2)
  - ASTHMA [None]
  - DRUG INEFFECTIVE [None]
